FAERS Safety Report 7366811-8 (Version None)
Quarter: 2011Q1

REPORT INFORMATION
  Report Type: 
  Country: None (occurrence: None)
  Receive Date: 20110322
  Receipt Date: 20110315
  Transmission Date: 20110831
  Serious: Yes (Other)
  Sender: FDA-Public Use
  Company Number: JP-ROCHE-766192

PATIENT
  Sex: Male

DRUGS (2)
  1. AVASTIN [Suspect]
     Indication: RECTAL CANCER
     Dosage: DOSAGE IS UNCERTAIN
     Route: 041
  2. XELODA [Suspect]
     Indication: RECTAL CANCER
     Dosage: XELODA 300
     Route: 048

REACTIONS (2)
  - RENAL ARTERY STENOSIS [None]
  - NEPHROTIC SYNDROME [None]
